FAERS Safety Report 5115506-X (Version None)
Quarter: 2006Q3

REPORT INFORMATION
  Report Type: 
  Country: None (occurrence: None)
  Receive Date: 20060927
  Receipt Date: 20060920
  Transmission Date: 20061208
  Serious: Yes (Life-Threatening)
  Sender: FDA-Public Use
  Company Number: 2006AP04380

PATIENT
  Age: 34 Year
  Sex: Male

DRUGS (1)
  1. ANAPEINE [Suspect]
     Indication: EPIDURAL ANAESTHESIA
     Route: 008

REACTIONS (4)
  - DYSPNOEA [None]
  - LOSS OF CONSCIOUSNESS [None]
  - RESPIRATORY ARREST [None]
  - SPINAL ANAESTHESIA [None]
